FAERS Safety Report 11262995 (Version 1)
Quarter: 2015Q3

REPORT INFORMATION
  Report Type: Spontaneous
  Country: US (occurrence: US)
  Receive Date: 20150710
  Receipt Date: 20150710
  Transmission Date: 20151125
  Serious: Yes (Hospitalization)
  Sender: FDA-Public Use
  Company Number: US-BAUSCH-BL-2015-016799

PATIENT
  Age: 70 Year
  Sex: Male
  Weight: 102.15 kg

DRUGS (5)
  1. CARVEDILOL. [Concomitant]
     Active Substance: CARVEDILOL
     Indication: HYPERTENSION
     Route: 048
  2. JUBLIA [Suspect]
     Active Substance: EFINACONAZOLE
     Indication: NAIL DISORDER
     Route: 061
     Dates: start: 201412, end: 20150513
  3. HYZAR [Concomitant]
     Indication: HYPERTENSION
     Route: 048
  4. CRESTOR [Concomitant]
     Active Substance: ROSUVASTATIN CALCIUM
     Indication: HYPERCHOLESTEROLAEMIA
     Route: 048
  5. PLAVIX [Concomitant]
     Active Substance: CLOPIDOGREL BISULFATE
     Indication: SUPPORTIVE CARE
     Route: 048
     Dates: start: 201501

REACTIONS (4)
  - Blister [Recovered/Resolved]
  - Stent placement [Unknown]
  - Drug hypersensitivity [Recovered/Resolved]
  - Skin exfoliation [Recovered/Resolved]

NARRATIVE: CASE EVENT DATE: 20150119
